FAERS Safety Report 4942089-7 (Version None)
Quarter: 2006Q1

REPORT INFORMATION
  Report Type: 
  Country: None (occurrence: None)
  Receive Date: 20060313
  Receipt Date: 20050603
  Transmission Date: 20060701
  Serious: No
  Sender: FDA-Public Use
  Company Number: US-GLAXOSMITHKLINE-A0561101A

PATIENT
  Age: 65 Year
  Sex: Male
  Weight: 81.4 kg

DRUGS (1)
  1. EQUATE NICOTINE GUM 2MG [Suspect]
     Route: 002
     Dates: start: 20030101

REACTIONS (4)
  - DEPENDENCE [None]
  - DRUG ABUSER [None]
  - DRUG WITHDRAWAL SYNDROME [None]
  - IRRITABILITY [None]
